FAERS Safety Report 4927484-4 (Version None)
Quarter: 2006Q1

REPORT INFORMATION
  Report Type: 
  Country: None (occurrence: None)
  Receive Date: 20060228
  Receipt Date: 20050412
  Transmission Date: 20060701
  Serious: Yes (Hospitalization, Disabling)
  Sender: FDA-Public Use
  Company Number: US-MERCK-0504USA02103

PATIENT
  Age: 45 Year
  Sex: Male
  Weight: 123 kg

DRUGS (1)
  1. VIOXX [Suspect]
     Indication: ARTHRITIS
     Route: 048
     Dates: start: 20021201, end: 20040801

REACTIONS (3)
  - BACK INJURY [None]
  - MENTAL DISORDER [None]
  - MYOCARDIAL INFARCTION [None]
